FAERS Safety Report 9364243 (Version 1)
Quarter: 2013Q2

REPORT INFORMATION
  Report Type: Spontaneous
  Country: US (occurrence: None)
  Receive Date: 20130619
  Receipt Date: 20130619
  Transmission Date: 20140414
  Serious: Yes (Disabling, Other)
  Sender: FDA-Public Use
  Company Number: 1306-766

PATIENT
  Age: 87 Year
  Sex: Female

DRUGS (1)
  1. EYLEA (AFLIBERCEPT) (INJECTION) (AFLIBERCEPT) [Suspect]
     Indication: AGE-RELATED MACULAR DEGENERATION
     Dosage: 2 MG, INTRAVITREAL
     Dates: end: 20130507

REACTIONS (5)
  - Vision blurred [None]
  - Corneal deposits [None]
  - Vitreous floaters [None]
  - Eye inflammation [None]
  - Visual acuity reduced [None]
